FAERS Safety Report 5190964-3 (Version None)
Quarter: 2006Q4

REPORT INFORMATION
  Report Type: 
  Country: None (occurrence: None)
  Receive Date: 20061222
  Receipt Date: 20061214
  Transmission Date: 20070319
  Serious: Yes (Life-Threatening, Hospitalization, Other)
  Sender: FDA-Public Use
  Company Number: JP-ABBOTT-06P-087-0353454-00

PATIENT
  Age: 77 Year
  Sex: Female
  Weight: 52 kg

DRUGS (5)
  1. CLARITHROMYCIN [Suspect]
     Indication: UPPER RESPIRATORY TRACT INFLAMMATION
     Route: 048
     Dates: start: 20060930, end: 20060930
  2. AMLODIPINE BESYLATE [Suspect]
     Indication: ANGINA PECTORIS
     Route: 048
     Dates: end: 20060929
  3. PRANLUKAST HYDRATE [Suspect]
     Indication: RHINITIS ALLERGIC
     Route: 048
     Dates: start: 20060901, end: 20060929
  4. CEFOZOPRAN HYDROCHLORIDE [Suspect]
     Indication: UPPER RESPIRATORY TRACT INFLAMMATION
     Route: 042
     Dates: start: 20060930, end: 20060930
  5. LOXOPROFEN SODIUM HYDRATE [Suspect]
     Indication: UPPER RESPIRATORY TRACT INFLAMMATION
     Route: 048
     Dates: start: 20060930, end: 20060930

REACTIONS (3)
  - DYSPNOEA [None]
  - LARYNGEAL OEDEMA [None]
  - STEVENS-JOHNSON SYNDROME [None]
